FAERS Safety Report 4897143-5 (Version None)
Quarter: 2006Q1

REPORT INFORMATION
  Report Type: 
  Country: None (occurrence: None)
  Receive Date: 20060127
  Receipt Date: 20060117
  Transmission Date: 20060701
  Serious: Yes (Hospitalization, Other)
  Sender: FDA-Public Use
  Company Number: HQWYE383417JAN06

PATIENT
  Age: 56 Year
  Sex: Female

DRUGS (4)
  1. PANTOPRAZOLE SODIUM [Suspect]
     Indication: CHRONIC SINUSITIS
     Dosage: ORAL
     Route: 048
     Dates: start: 20051227
  2. AMOXICILLIN AND CLAVULANATE POTASSIUM [Suspect]
     Indication: CHRONIC SINUSITIS
     Dosage: ORAL
     Route: 048
     Dates: start: 20051227
  3. IBUPROFEN [Suspect]
     Indication: SINUSITIS
     Dosage: ORAL
     Route: 048
     Dates: start: 20051227
  4. ACETAMINOPHEN [Suspect]
     Indication: CHRONIC SINUSITIS
     Dosage: ORAL
     Route: 048
     Dates: start: 20051227

REACTIONS (7)
  - ABDOMINAL PAIN [None]
  - HYPERSENSITIVITY [None]
  - LOSS OF CONSCIOUSNESS [None]
  - ORTHOSTATIC HYPOTENSION [None]
  - PALATAL DISORDER [None]
  - PURPURA [None]
  - TACHYCARDIA [None]
